FAERS Safety Report 9728871 (Version 1)
Quarter: 2013Q4

REPORT INFORMATION
  Report Type: Spontaneous
  Country: US (occurrence: US)
  Receive Date: 20131204
  Receipt Date: 20131204
  Transmission Date: 20140711
  Serious: No
  Sender: FDA-Public Use
  Company Number: US-BIOGENIDEC-2013BI098395

PATIENT
  Sex: Female

DRUGS (4)
  1. TECFIDERA [Suspect]
     Indication: MULTIPLE SCLEROSIS
     Route: 048
  2. AVONEX [Concomitant]
  3. COPAXONE [Concomitant]
  4. BETASERON [Concomitant]

REACTIONS (7)
  - Migraine [Unknown]
  - Neck pain [Unknown]
  - Fatigue [Unknown]
  - Feeling cold [Unknown]
  - Abdominal pain upper [Unknown]
  - Pruritus [Unknown]
  - Flushing [Unknown]
